FAERS Safety Report 17825252 (Version 2)
Quarter: 2020Q2

REPORT INFORMATION
  Report Type: Spontaneous
  Country: US (occurrence: US)
  Receive Date: 20200526
  Receipt Date: 20200609
  Transmission Date: 20200714
  Serious: Yes (Death, Hospitalization, Other)
  Sender: FDA-Public Use
  Company Number: US-UNITED THERAPEUTICS-UNT-2020-004051

PATIENT
  Sex: Female
  Weight: 81.63 kg

DRUGS (4)
  1. LETAIRIS [Concomitant]
     Active Substance: AMBRISENTAN
     Indication: PRODUCT USED FOR UNKNOWN INDICATION
     Dosage: UNK
     Route: 065
  2. TYVASO [Suspect]
     Active Substance: TREPROSTINIL
     Dosage: UNK, QID (STARTED 4 OR 5 YEARS AGO)
  3. TYVASO [Suspect]
     Active Substance: TREPROSTINIL
     Indication: PULMONARY ARTERIAL HYPERTENSION
     Dosage: UNK
     Dates: start: 20160722, end: 20200217
  4. TYVASO [Suspect]
     Active Substance: TREPROSTINIL
     Indication: EMPHYSEMA
     Dosage: 54 ?G, QID

REACTIONS (5)
  - Respiratory failure [Fatal]
  - Emphysema [Unknown]
  - Fluid overload [Unknown]
  - Renal failure [Unknown]
  - Off label use [Unknown]
